FAERS Safety Report 6316303-X (Version None)
Quarter: 2009Q3

REPORT INFORMATION
  Report Type: 
  Country: None (occurrence: None)
  Receive Date: 20090820
  Receipt Date: 20090811
  Transmission Date: 20100115
  Serious: Yes (Other)
  Sender: FDA-Public Use
  Company Number: MX-AVENTIS-200913436GDDC

PATIENT
  Age: 52 Year
  Sex: Female
  Weight: 76 kg

DRUGS (11)
  1. LANTUS [Suspect]
     Indication: TYPE 2 DIABETES MELLITUS
     Route: 058
     Dates: start: 20080901, end: 20090324
  2. LANTUS [Suspect]
     Route: 058
     Dates: start: 20090325, end: 20090601
  3. LANTUS [Suspect]
     Route: 058
     Dates: start: 20090601
  4. SHORANT [Suspect]
     Indication: TYPE 1 DIABETES MELLITUS
     Route: 058
     Dates: start: 20080901, end: 20090324
  5. SHORANT [Suspect]
     Route: 058
     Dates: start: 20090325, end: 20090601
  6. SHORANT [Suspect]
     Route: 058
     Dates: start: 20090601
  7. BISOPROLOL [Concomitant]
     Route: 048
     Dates: start: 20081001
  8. FUROSEMIDE [Concomitant]
     Route: 048
     Dates: start: 20081001
  9. CAPTOPRIL [Concomitant]
     Route: 048
     Dates: start: 20081001
  10. GLUCOVANCE                         /01503701/ [Concomitant]
     Indication: TYPE 2 DIABETES MELLITUS
     Dosage: DOSE: 250/1.25
     Route: 048
     Dates: start: 20081001
  11. DABEX XR [Concomitant]
     Indication: TYPE 2 DIABETES MELLITUS
     Dosage: DOSE QUANTITY: 1
     Route: 048
     Dates: start: 20081001

REACTIONS (5)
  - APPLICATION SITE IRRITATION [None]
  - HYPOTHYROIDISM [None]
  - MUSCULOSKELETAL DISCOMFORT [None]
  - SENSATION OF PRESSURE [None]
  - WEIGHT INCREASED [None]
